FAERS Safety Report 6504118-9 (Version None)
Quarter: 2009Q4

REPORT INFORMATION
  Report Type: 
  Country: None (occurrence: None)
  Receive Date: 20091217
  Receipt Date: 20091207
  Transmission Date: 20100525
  Serious: Yes (Other)
  Sender: FDA-Public Use
  Company Number: JP-ABBOTT-09P-087-0600994-00

PATIENT
  Age: 84 Year
  Sex: Male

DRUGS (5)
  1. LEUPLIN SR FOR INJECTION 11.25 MG [Suspect]
     Indication: PROSTATE CANCER STAGE III
     Route: 058
     Dates: start: 20070327
  2. BLOPRESS [Concomitant]
     Indication: HYPERTENSION
     Route: 048
  3. BICALUTAMIDE [Concomitant]
     Indication: PROSTATE CANCER STAGE III
     Route: 048
     Dates: start: 20070327
  4. TAMSULOSIN HYDROCHLORIDE [Concomitant]
     Indication: BENIGN PROSTATIC HYPERPLASIA
     Route: 048
  5. CONIEL [Concomitant]
     Indication: HYPERTENSION
     Route: 048

REACTIONS (9)
  - CONSTIPATION [None]
  - DIARRHOEA [None]
  - DYSAESTHESIA [None]
  - GASTRITIS [None]
  - INSOMNIA [None]
  - LUNG NEOPLASM MALIGNANT [None]
  - NAUSEA [None]
  - NEUTROPENIA [None]
  - UPPER RESPIRATORY TRACT INFLAMMATION [None]
